FAERS Safety Report 8168719-7 (Version None)
Quarter: 2012Q1

REPORT INFORMATION
  Report Type: 
  Country: None (occurrence: None)
  Receive Date: 20120103
  Receipt Date: 20111116
  Transmission Date: 20120608
  Serious: No
  Sender: FDA-Public Use
  Company Number: AE-2011-003609

PATIENT
  Age: 60 Year
  Sex: Female
  Weight: 83.4619 kg

DRUGS (3)
  1. INCIVEK [Suspect]
     Dosage: 2250 MG (750 MG, EVERY 7-9 HOURS), ORAL
     Route: 048
     Dates: start: 20110902
  2. RIBAPAK (RIBAVIRIN) [Concomitant]
  3. PEGAYS (PEGINTERFERON ALFA-2A) [Concomitant]

REACTIONS (3)
  - DEPRESSED MOOD [None]
  - PRURITUS GENERALISED [None]
  - FATIGUE [None]
